FAERS Safety Report 18858207 (Version 1)
Quarter: 2021Q1

REPORT INFORMATION
  Report Type: Spontaneous
  Country: US (occurrence: US)
  Receive Date: 20210205
  Receipt Date: 20210205
  Transmission Date: 20210420
  Serious: Yes (Other)
  Sender: FDA-Public Use
  Company Number: None

PATIENT
  Sex: Female

DRUGS (2)
  1. METROCREAM [Suspect]
     Active Substance: METRONIDAZOLE
  2. FINACEA [Suspect]
     Active Substance: AZELAIC ACID

REACTIONS (1)
  - Therapy non-responder [None]
